FAERS Safety Report 5476490-2 (Version None)
Quarter: 2007Q3

REPORT INFORMATION
  Report Type: 
  Country: None (occurrence: None)
  Receive Date: 20070904
  Receipt Date: 20070621
  Transmission Date: 20080115
  Serious: No
  Sender: FDA-Public Use
  Company Number: PHEH2007US09116

PATIENT
  Age: 45 Year
  Sex: Female

DRUGS (1)
  1. ENABLEX [Suspect]
     Indication: URINARY INCONTINENCE
     Dosage: 150 MG, QD, ORAL
     Route: 048

REACTIONS (2)
  - DRUG INEFFECTIVE [None]
  - FATIGUE [None]
